FAERS Safety Report 6547161-6 (Version None)
Quarter: 2010Q1

REPORT INFORMATION
  Report Type: 
  Country: None (occurrence: None)
  Receive Date: 20100122
  Receipt Date: 20100120
  Transmission Date: 20100710
  Serious: Yes (Hospitalization, Other)
  Sender: FDA-Public Use
  Company Number: GB-ROCHE-674056

PATIENT
  Sex: Female

DRUGS (3)
  1. TOCILIZUMAB [Suspect]
     Dosage: DOSE PLANNED FOR 29 DECEMBER 2009 CANCELLED DUE TO NEUTROPENIA
     Route: 042
     Dates: start: 20090811, end: 20091202
  2. TOCILIZUMAB [Suspect]
     Route: 042
     Dates: start: 20100119
  3. NAPROXEN [Concomitant]
     Dosage: YEARS
     Route: 048

REACTIONS (3)
  - NEUTROPENIC SEPSIS [None]
  - NEUTROPHIL COUNT DECREASED [None]
  - WHITE BLOOD CELL COUNT DECREASED [None]
